FAERS Safety Report 21921149 (Version 1)
Quarter: 2023Q1

REPORT INFORMATION
  Report Type: Spontaneous
  Country: CN (occurrence: CN)
  Receive Date: 20230127
  Receipt Date: 20230127
  Transmission Date: 20230418
  Serious: Yes (Hospitalization, Other)
  Sender: FDA-Public Use
  Company Number: None

PATIENT
  Age: 43 Year
  Sex: Female
  Weight: 54 kg

DRUGS (8)
  1. CYCLOPHOSPHAMIDE [Suspect]
     Active Substance: CYCLOPHOSPHAMIDE
     Indication: Chemotherapy
     Dosage: 0.9 G, QD, DILUTED WITH 250 ML OF SODIUM CHLORIDE, ADJUVANT CHEMOTHERAPY
     Route: 041
     Dates: start: 20221219, end: 20221219
  2. CYCLOPHOSPHAMIDE [Suspect]
     Active Substance: CYCLOPHOSPHAMIDE
     Indication: Targeted cancer therapy
  3. CYCLOPHOSPHAMIDE [Suspect]
     Active Substance: CYCLOPHOSPHAMIDE
     Indication: Breast cancer stage II
  4. SODIUM CHLORIDE [Suspect]
     Active Substance: SODIUM CHLORIDE
     Indication: Vehicle solution use
     Dosage: 250 ML, QD, USED TO DILUTE 0.9 G OF CYCLOPHOSPHAMIDE, ADJUVANT CHEMOTHERAPY
     Route: 041
     Dates: start: 20221219, end: 20221219
  5. DOCETAXEL [Suspect]
     Active Substance: DOCETAXEL
     Indication: Chemotherapy
     Dosage: 120 MG, QD, DILUTED WITH 50 ML OF SODIUM CHLORIDE, ADJUVANT CHEMOTHERAPY
     Route: 041
     Dates: start: 20221219, end: 20221219
  6. DOCETAXEL [Suspect]
     Active Substance: DOCETAXEL
     Indication: Targeted cancer therapy
  7. DOCETAXEL [Suspect]
     Active Substance: DOCETAXEL
     Indication: Breast cancer stage II
  8. SODIUM CHLORIDE [Suspect]
     Active Substance: SODIUM CHLORIDE
     Indication: Vehicle solution use
     Dosage: 50 ML, QD, USED TO DILUTE 120 MG OF DOCETAXEL, ADJUVANT CHEMOTHERAPY
     Route: 041
     Dates: start: 20221219, end: 20221219

REACTIONS (7)
  - White blood cell count decreased [Recovered/Resolved]
  - Pyrexia [Recovered/Resolved]
  - Chills [Recovered/Resolved]
  - Agranulocytosis [Recovered/Resolved]
  - Asthenia [Recovered/Resolved]
  - Myelosuppression [Unknown]
  - Neutrophil count decreased [Unknown]

NARRATIVE: CASE EVENT DATE: 20221225
